FAERS Safety Report 22141976 (Version 1)
Quarter: 2023Q1

REPORT INFORMATION
  Report Type: Spontaneous
  Country: FR (occurrence: FR)
  Receive Date: 20230327
  Receipt Date: 20230327
  Transmission Date: 20230417
  Serious: Yes (Hospitalization)
  Sender: FDA-Public Use
  Company Number: None

PATIENT
  Age: 49 Year
  Sex: Male
  Weight: 71 kg

DRUGS (4)
  1. CLINDAMYCIN [Suspect]
     Active Substance: CLINDAMYCIN
     Indication: Staphylococcal infection
     Dosage: 600 MILLIGRAM, Q6H
     Route: 048
     Dates: start: 20230203, end: 20230222
  2. TERBUTALINE [Suspect]
     Active Substance: TERBUTALINE
     Indication: Lung disorder
     Dosage: 5 MG, BID, 5 MG/2 ML SINGLE-DOSE CONTAINER
     Dates: start: 20230203, end: 20230221
  3. VANCOMYCIN [Suspect]
     Active Substance: VANCOMYCIN
     Indication: Staphylococcal infection
     Dosage: 2.5 GRAM, QD
     Route: 042
     Dates: start: 20230207, end: 20230222
  4. IPRATROPIUM [Suspect]
     Active Substance: IPRATROPIUM
     Indication: Lung disorder
     Dosage: 0.5 MG, BID,0.5 MG/2 ML, SINGLE-DOSE CONTAINER
     Dates: start: 20230203, end: 20230221

REACTIONS (3)
  - Purpura [Recovered/Resolved]
  - Rash maculo-papular [Recovered/Resolved]
  - Pruritus [Recovered/Resolved]

NARRATIVE: CASE EVENT DATE: 20230221
